FAERS Safety Report 16419699 (Version 1)
Quarter: 2019Q2

REPORT INFORMATION
  Report Type: Spontaneous
  Country: US (occurrence: US)
  Receive Date: 20190503
  Receipt Date: 20190503
  Transmission Date: 20190711
  Serious: Yes (Hospitalization)
  Sender: FDA-Public Use
  Company Number: None

PATIENT
  Age: 47 Year
  Sex: Female

DRUGS (1)
  1. LETAIRIS [Suspect]
     Active Substance: AMBRISENTAN
     Indication: HEART DISEASE CONGENITAL
     Route: 048
     Dates: start: 20181108

REACTIONS (5)
  - Cellulitis [None]
  - Pyrexia [None]
  - Injection site pain [None]
  - Injection site erythema [None]
  - Hypersensitivity [None]

NARRATIVE: CASE EVENT DATE: 20190424
